FAERS Safety Report 15693483 (Version 2)
Quarter: 2018Q4

REPORT INFORMATION
  Report Type: Spontaneous
  Country: EG (occurrence: EG)
  Receive Date: 20181206
  Receipt Date: 20181222
  Transmission Date: 20190205
  Serious: Yes (Other)
  Sender: FDA-Public Use
  Company Number: EG-ASTELLAS-2018US051924

PATIENT
  Sex: Male

DRUGS (1)
  1. BETMIGA [Suspect]
     Active Substance: MIRABEGRON
     Indication: TRANSURETHRAL PROSTATECTOMY
     Dosage: UNK UNK, UNKNOWN FREQ.
     Route: 048

REACTIONS (3)
  - Urinary tract infection [Unknown]
  - Haematuria [Recovered/Resolved]
  - Product use in unapproved indication [Unknown]
